FAERS Safety Report 16412696 (Version 1)
Quarter: 2019Q2

REPORT INFORMATION
  Report Type: Spontaneous
  Country: BE (occurrence: BE)
  Receive Date: 20190611
  Receipt Date: 20190611
  Transmission Date: 20190711
  Serious: Yes (Hospitalization, Other)
  Sender: FDA-Public Use
  Company Number: BE-AUROBINDO-AUR-APL-2019-033381

PATIENT

DRUGS (20)
  1. LEVOLEUCOVORIN INJECTION [Suspect]
     Active Substance: LEVOLEUCOVORIN
     Indication: COLORECTAL CANCER METASTATIC
     Dosage: 4804.9 MILLIGRAM, 2WEEK
     Route: 042
     Dates: start: 20170912, end: 20171114
  2. LEVOLEUCOVORIN INJECTION [Suspect]
     Active Substance: LEVOLEUCOVORIN
     Dosage: 1 UNK, 3 WEEK
     Route: 042
     Dates: start: 20171212
  3. BEVACIZUMAB. [Suspect]
     Active Substance: BEVACIZUMAB
     Indication: COLORECTAL CANCER METASTATIC
     Dosage: 325 MILLIGRAM, 3 WEEK
     Route: 042
     Dates: start: 20170912, end: 20180430
  4. FLUOROURACIL. [Suspect]
     Active Substance: FLUOROURACIL
     Dosage: 4804.9 MILLIGRAM, 3 WEEK, 721.1 MG (BOOST) WITH 4326.8 MG (BOLUS)
     Route: 042
     Dates: start: 20171212
  5. OXALIPLATIN. [Suspect]
     Active Substance: OXALIPLATIN
     Dosage: 73 MILLIGRAM, 2 WEEK
     Route: 042
     Dates: start: 20171114, end: 20171212
  6. DUROGESIC [Concomitant]
     Active Substance: FENTANYL
     Indication: PRODUCT USED FOR UNKNOWN INDICATION
     Dosage: UNK
     Route: 065
     Dates: end: 2017
  7. STILNOCT [Concomitant]
     Active Substance: ZOLPIDEM TARTRATE
     Indication: PROPHYLAXIS
     Dosage: UNK
     Route: 065
     Dates: start: 2017
  8. LAXIDO [Concomitant]
     Active Substance: POLYETHYLENE GLYCOL 3350\POTASSIUM CHLORIDE\SODIUM BICARBONATE\SODIUM CHLORIDE
     Indication: PROPHYLAXIS
     Dosage: UNK
     Route: 065
     Dates: start: 2017
  9. DUROGESIC [Concomitant]
     Active Substance: FENTANYL
     Dosage: UNK
     Route: 065
     Dates: start: 201803
  10. LEVOLEUCOVORIN INJECTION [Suspect]
     Active Substance: LEVOLEUCOVORIN
     Dosage: 1 UNK, 2 WEEK
     Route: 042
     Dates: start: 20171114, end: 20171212
  11. OXALIPLATIN. [Suspect]
     Active Substance: OXALIPLATIN
     Indication: COLORECTAL CANCER METASTATIC
     Dosage: 73 MILLIGRAM, 2 WEEK
     Route: 042
     Dates: start: 20170912, end: 20171114
  12. DAFALGAN [Concomitant]
     Active Substance: ACETAMINOPHEN
     Indication: PRODUCT USED FOR UNKNOWN INDICATION
     Dosage: UNK
     Route: 065
  13. FLUOROURACIL. [Suspect]
     Active Substance: FLUOROURACIL
     Dosage: 1 UNK, 3 WEEK, 721.1 MG (BOOST) WITH 4326.8 MG (BOLUS)
     Route: 042
     Dates: start: 20171114, end: 20171212
  14. OXYNORM [Concomitant]
     Active Substance: OXYCODONE HYDROCHLORIDE
     Indication: PRODUCT USED FOR UNKNOWN INDICATION
     Dosage: UNK
     Route: 065
  15. ZOMETA [Concomitant]
     Active Substance: ZOLEDRONIC ACID
     Indication: PRODUCT USED FOR UNKNOWN INDICATION
     Dosage: UNK
     Route: 065
  16. FLUOROURACIL. [Suspect]
     Active Substance: FLUOROURACIL
     Indication: COLORECTAL CANCER METASTATIC
     Dosage: 4804.9 MILLIGRAM, 3 WEEK
     Route: 042
     Dates: start: 20170912, end: 20171114
  17. AUGMENTIN [Concomitant]
     Active Substance: AMOXICILLIN\CLAVULANATE POTASSIUM
     Indication: HAEMATURIA
     Dosage: UNK
     Route: 065
     Dates: start: 20171226, end: 20180101
  18. LEVOLEUCOVORIN INJECTION [Suspect]
     Active Substance: LEVOLEUCOVORIN
     Dosage: 361 MILLIGRAM, 2 WEEK
     Route: 042
     Dates: start: 20170912, end: 20171114
  19. OXALIPLATIN. [Suspect]
     Active Substance: OXALIPLATIN
     Dosage: 73 MILLIGRAM, 2 WEEK
     Route: 042
     Dates: start: 20171212, end: 20171212
  20. AUGMENTIN [Concomitant]
     Active Substance: AMOXICILLIN\CLAVULANATE POTASSIUM
     Indication: PROPHYLAXIS
     Dosage: UNK
     Route: 065
     Dates: start: 20170920, end: 20170921

REACTIONS (17)
  - Perineal pain [Not Recovered/Not Resolved]
  - Pain [Recovered/Resolved]
  - Malaise [Recovering/Resolving]
  - Decreased appetite [Not Recovered/Not Resolved]
  - Neuropathy peripheral [Recovered/Resolved]
  - Dyspnoea [Recovering/Resolving]
  - Weight decreased [Recovering/Resolving]
  - Seizure [Recovered/Resolved]
  - Constipation [Recovered/Resolved]
  - Vomiting [Recovered/Resolved]
  - Fatigue [Recovering/Resolving]
  - Anaemia [Recovering/Resolving]
  - Transferrin saturation decreased [Recovered/Resolved]
  - Haematuria [Recovering/Resolving]
  - Haematoma infection [Recovered/Resolved]
  - Chronic kidney disease [Not Recovered/Not Resolved]
  - Nausea [Recovered/Resolved]

NARRATIVE: CASE EVENT DATE: 20170926
